FAERS Safety Report 6579493-X (Version None)
Quarter: 2010Q1

REPORT INFORMATION
  Report Type: 
  Country: None (occurrence: None)
  Receive Date: 20100212
  Receipt Date: 20100208
  Transmission Date: 20100710
  Serious: Yes (Death, Hospitalization)
  Sender: FDA-Public Use
  Company Number: JP-BAYER-200910346BYL

PATIENT
  Age: 68 Year
  Sex: Male
  Weight: 58 kg

DRUGS (27)
  1. NEXAVAR [Suspect]
     Indication: RENAL CELL CARCINOMA
     Dosage: UNIT DOSE: 200 MG
     Route: 048
     Dates: start: 20080524, end: 20080930
  2. NEXAVAR [Suspect]
     Dosage: UNIT DOSE: 200 MG
     Route: 048
     Dates: start: 20090601
  3. NEXAVAR [Suspect]
     Dosage: UNIT DOSE: 200 MG
     Route: 048
     Dates: start: 20081015, end: 20090522
  4. VOLTAREN [Concomitant]
     Route: 054
     Dates: start: 20040105, end: 20090520
  5. HARNAL [Concomitant]
     Route: 048
     Dates: start: 20041029, end: 20090520
  6. DUROTEP [Concomitant]
     Route: 062
     Dates: start: 20050522, end: 20090520
  7. DEPAS [Concomitant]
     Route: 048
     Dates: start: 20070214, end: 20090520
  8. OPSO [Concomitant]
     Indication: PAIN
     Route: 048
     Dates: start: 20050522, end: 20090520
  9. GASTER D [Concomitant]
     Indication: GASTRITIS PROPHYLAXIS
     Route: 048
     Dates: start: 20090521, end: 20090621
  10. GASTER D [Concomitant]
     Route: 048
     Dates: start: 20070308, end: 20090520
  11. METHYCOBAL [Concomitant]
     Route: 048
     Dates: start: 20070413, end: 20090520
  12. EURODIN [Concomitant]
     Route: 048
     Dates: start: 20080523, end: 20090520
  13. TEGRETOL [Concomitant]
     Route: 048
     Dates: start: 20080529, end: 20090520
  14. MEXITIL [Concomitant]
     Route: 048
     Dates: start: 20080529, end: 20090520
  15. HORIZON [Concomitant]
     Route: 048
     Dates: start: 20080529, end: 20090520
  16. ALOSITOL [Concomitant]
     Route: 048
     Dates: start: 20080623, end: 20090331
  17. LASIX [Concomitant]
     Route: 048
     Dates: start: 20080131, end: 20090520
  18. OXINORM [Concomitant]
     Indication: PAIN
     Dosage: UNIT DOSE: 0.5 %
     Route: 048
     Dates: start: 20081003, end: 20090626
  19. AMOXAN [Concomitant]
     Indication: PAIN
     Route: 048
     Dates: start: 20081008, end: 20081030
  20. CONSTAN [Concomitant]
     Route: 048
     Dates: start: 20081009
  21. OXYCONTIN [Concomitant]
     Route: 048
     Dates: start: 20090530, end: 20090626
  22. OXYCONTIN [Concomitant]
     Route: 048
     Dates: start: 20090502
  23. OXYCONTIN [Concomitant]
     Route: 048
     Dates: start: 20081013
  24. MORPHINE HYDROCHLORIDE [Concomitant]
     Route: 042
     Dates: start: 20090522, end: 20090522
  25. GABAPEN [Concomitant]
     Route: 048
     Dates: start: 20090521, end: 20090621
  26. RISPERDAL [Concomitant]
     Route: 048
     Dates: start: 20090521, end: 20090621
  27. LENDORMIN D [Concomitant]
     Route: 048
     Dates: start: 20090521, end: 20090621

REACTIONS (12)
  - ANAEMIA [None]
  - DECUBITUS ULCER [None]
  - DEHYDRATION [None]
  - DIARRHOEA [None]
  - GENERALISED OEDEMA [None]
  - HAEMATOCHEZIA [None]
  - MUSCULOSKELETAL PAIN [None]
  - PALMAR-PLANTAR ERYTHRODYSAESTHESIA SYNDROME [None]
  - PLEURAL EFFUSION [None]
  - PYREXIA [None]
  - RENAL CELL CARCINOMA [None]
  - XERODERMA [None]
